FAERS Safety Report 12786539 (Version 1)
Quarter: 2016Q3

REPORT INFORMATION
  Report Type: Spontaneous
  Country: US (occurrence: US)
  Receive Date: 20160924
  Receipt Date: 20160924
  Transmission Date: 20161109
  Serious: Yes (Hospitalization)
  Sender: FDA-Public Use
  Company Number: None

PATIENT
  Age: 62 Year
  Sex: Female
  Weight: 61.2 kg

DRUGS (1)
  1. CISPLATIN. [Suspect]
     Active Substance: CISPLATIN
     Dates: end: 20151207

REACTIONS (12)
  - Small intestinal obstruction [None]
  - Nausea [None]
  - Sepsis [None]
  - Wound dehiscence [None]
  - Appendicitis [None]
  - Haematotoxicity [None]
  - Vomiting [None]
  - Tachycardia [None]
  - Acute kidney injury [None]
  - Volvulus [None]
  - Gastrointestinal necrosis [None]
  - Pancytopenia [None]

NARRATIVE: CASE EVENT DATE: 20151212
